FAERS Safety Report 4556862-0 (Version None)
Quarter: 2005Q1

REPORT INFORMATION
  Report Type: 
  Country: None (occurrence: None)
  Receive Date: 20050118
  Receipt Date: 20040107
  Transmission Date: 20050727
  Serious: Yes (Death, Hospitalization)
  Sender: FDA-Public Use
  Company Number: 800195

PATIENT
  Age: 60 Year
  Sex: Male
  Weight: 73 kg

DRUGS (2)
  1. DIANEAL PD-2 W/ DEXTROSE 2.5% IN PLASTIC CONTAINER [Suspect]
     Indication: PERITONEAL DIALYSIS
     Dosage: 8 L;QD;INTRAPERITONEAL
     Route: 033
     Dates: start: 20041101
  2. MAXIPIME [Concomitant]

REACTIONS (10)
  - CARDIAC FAILURE [None]
  - CEREBRAL HAEMORRHAGE [None]
  - DEHYDRATION [None]
  - HYDROCEPHALUS [None]
  - HYPOTENSION [None]
  - MEDICAL DEVICE COMPLICATION [None]
  - PERITONITIS BACTERIAL [None]
  - PNEUMONIA ASPIRATION [None]
  - POSTOPERATIVE INFECTION [None]
  - STAPHYLOCOCCAL INFECTION [None]
